FAERS Safety Report 5818895-3 (Version None)
Quarter: 2008Q3

REPORT INFORMATION
  Report Type: 
  Country: None (occurrence: None)
  Receive Date: 20080717
  Receipt Date: 20080701
  Transmission Date: 20090109
  Serious: Yes (Death)
  Sender: FDA-Public Use
  Company Number: 013684

PATIENT
  Sex: Female

DRUGS (2)
  1. PRIALT [Suspect]
     Indication: CANCER PAIN
     Dosage: 0.15 UG, ONCE/HOUR, INTRATHECAL
     Route: 037
     Dates: start: 20080326, end: 20080614
  2. ANTINEOPLASTIC AGENTS [Concomitant]

REACTIONS (2)
  - CARDIO-RESPIRATORY ARREST [None]
  - LUNG NEOPLASM MALIGNANT [None]
